FAERS Safety Report 17950314 (Version 1)
Quarter: 2020Q2

REPORT INFORMATION
  Report Type: Spontaneous
  Country: US (occurrence: US)
  Receive Date: 20200626
  Receipt Date: 20200626
  Transmission Date: 20200714
  Serious: Yes (Disabling)
  Sender: FDA-Public Use
  Company Number: None

PATIENT
  Age: 52 Year
  Sex: Female
  Weight: 71.1 kg

DRUGS (8)
  1. PREDNISONE. [Concomitant]
     Active Substance: PREDNISONE
  2. LISINOPRIL. [Concomitant]
     Active Substance: LISINOPRIL
  3. ATORVASTATIN [Suspect]
     Active Substance: ATORVASTATIN
     Indication: BLOOD CHOLESTEROL INCREASED
     Route: 048
     Dates: start: 20120101, end: 20160701
  4. HYDROCODONE [Concomitant]
     Active Substance: HYDROCODONE
  5. CARVEDILOL. [Concomitant]
     Active Substance: CARVEDILOL
  6. MYCOPHENOLATE (CELLCEPT) [Concomitant]
  7. ASPIRIN. [Concomitant]
     Active Substance: ASPIRIN
  8. METFORMIN HCL [Concomitant]
     Active Substance: METFORMIN HYDROCHLORIDE

REACTIONS (1)
  - Polymyositis [None]

NARRATIVE: CASE EVENT DATE: 20160716
